FAERS Safety Report 8992274 (Version 2)
Quarter: 2013Q1

REPORT INFORMATION
  Report Type: Report from Study
  Country: IL (occurrence: IL)
  Receive Date: 20130101
  Receipt Date: 20130208
  Transmission Date: 20140127
  Serious: Yes (Hospitalization)
  Sender: FDA-Public Use
  Company Number: IL-009507513-1210ISR014058

PATIENT
  Age: 6 Year
  Sex: Male
  Weight: 25.5 kg

DRUGS (14)
  1. BLINDED APREPITANT [Suspect]
     Indication: PROPHYLAXIS OF NAUSEA AND VOMITING
     Dosage: UNK
     Route: 048
     Dates: start: 20121015, end: 20121017
  2. BLINDED APREPITANT [Suspect]
     Indication: PROPHYLAXIS OF NAUSEA AND VOMITING
     Dosage: UNK
     Route: 048
     Dates: start: 20121015, end: 20121017
  3. BLINDED DEXAMETHASONE [Suspect]
     Indication: PROPHYLAXIS OF NAUSEA AND VOMITING
     Dosage: UNK
     Route: 048
     Dates: start: 20121015, end: 20121017
  4. BLINDED DEXAMETHASONE [Suspect]
     Indication: PROPHYLAXIS OF NAUSEA AND VOMITING
     Dosage: UNK
     Route: 048
     Dates: start: 20121015, end: 20121017
  5. BLINDED ONDANSETRON [Suspect]
     Indication: PROPHYLAXIS OF NAUSEA AND VOMITING
     Dosage: UNK
     Route: 048
     Dates: start: 20121015, end: 20121017
  6. BLINDED ONDANSETRON HCL [Suspect]
     Indication: PROPHYLAXIS OF NAUSEA AND VOMITING
     Dosage: UNK
     Route: 048
     Dates: start: 20121015, end: 20121017
  7. BLINDED PLACEBO [Suspect]
     Indication: PROPHYLAXIS OF NAUSEA AND VOMITING
     Dosage: UNK
     Route: 048
     Dates: start: 20121015, end: 20121017
  8. BLINDED POST TRIAL THERAPY [Suspect]
     Indication: PROPHYLAXIS OF NAUSEA AND VOMITING
     Dosage: UNK
     Route: 048
     Dates: start: 20121015, end: 20121017
  9. BLINDED PRE TRIAL THERAPY [Suspect]
     Indication: PROPHYLAXIS OF NAUSEA AND VOMITING
     Dosage: UNK
     Route: 048
     Dates: start: 20121015, end: 20121017
  10. DEXAMETHASONE [Suspect]
     Indication: PROPHYLAXIS OF NAUSEA AND VOMITING
     Dosage: 50 ML, QD, CYCLE 1
     Route: 042
     Dates: start: 20121015, end: 20121016
  11. ONDANSETRON [Suspect]
     Indication: PROPHYLAXIS OF NAUSEA AND VOMITING
     Dosage: 4.5 MG, QD IN CYCLE 1
     Route: 042
     Dates: start: 20121015, end: 20121015
  12. ONDANSETRON [Suspect]
     Dosage: 4.5 MG, TID IN CYCLE 1
     Route: 042
     Dates: start: 20121016, end: 20121016
  13. ONDANSETRON [Suspect]
     Dosage: 4.5 MG, BID IN CYCLE 1
     Route: 042
     Dates: start: 20121017, end: 20121017
  14. PRAMIN [Concomitant]
     Indication: NAUSEA
     Dosage: TOTAL DAILY DOSE: 4 MG
     Route: 042
     Dates: start: 20121015, end: 20121016

REACTIONS (1)
  - Febrile neutropenia [Recovered/Resolved]
